FAERS Safety Report 13188922 (Version 1)
Quarter: 2017Q1

REPORT INFORMATION
  Report Type: Spontaneous
  Country: US (occurrence: US)
  Receive Date: 20170203
  Receipt Date: 20170203
  Transmission Date: 20170428
  Serious: No
  Sender: FDA-Public Use
  Company Number: None

PATIENT
  Age: 52 Year
  Sex: Female

DRUGS (2)
  1. NEUPRO [Suspect]
     Active Substance: ROTIGOTINE
     Indication: OSTEOARTHRITIS
  2. NEUPRO [Suspect]
     Active Substance: ROTIGOTINE
     Indication: PERIODIC LIMB MOVEMENT DISORDER

REACTIONS (2)
  - Dysaesthesia [None]
  - Seizure [None]

NARRATIVE: CASE EVENT DATE: 20170120
